FAERS Safety Report 5060203-2 (Version None)
Quarter: 2006Q3

REPORT INFORMATION
  Report Type: 
  Country: None (occurrence: None)
  Receive Date: 20060720
  Receipt Date: 20060713
  Transmission Date: 20061208
  Serious: Yes (Other)
  Sender: FDA-Public Use
  Company Number: STA-AE-06-MTX-005

PATIENT
  Age: 33 Year
  Sex: Female

DRUGS (2)
  1. METHOTREXATE [Suspect]
     Indication: SCLERITIS
     Dosage: 10 MG 1XW - PO
     Route: 048
     Dates: start: 20060602, end: 20060602
  2. PREDNISOLONE [Concomitant]

REACTIONS (5)
  - OEDEMA PERIPHERAL [None]
  - PARAESTHESIA [None]
  - PRURITUS [None]
  - SWELLING FACE [None]
  - URTICARIA [None]
